FAERS Safety Report 6824728-9 (Version None)
Quarter: 2010Q3

REPORT INFORMATION
  Report Type: 
  Country: None (occurrence: None)
  Receive Date: 20100708
  Receipt Date: 20061113
  Transmission Date: 20110219
  Serious: Yes (Other)
  Sender: FDA-Public Use
  Company Number: US-PFIZER INC-2006142847

PATIENT
  Sex: Male
  Weight: 133.81 kg

DRUGS (13)
  1. CHANTIX [Suspect]
     Indication: SMOKING CESSATION THERAPY
     Route: 048
     Dates: start: 20061103
  2. ADVAIR DISKUS 100/50 [Concomitant]
     Indication: CHRONIC OBSTRUCTIVE PULMONARY DISEASE
  3. PROZAC [Concomitant]
  4. PRAVASTATIN [Concomitant]
  5. OMEPRAZOLE [Concomitant]
  6. LISINOPRIL [Concomitant]
  7. PREDNISONE [Concomitant]
  8. POTASSIUM CHLORIDE [Concomitant]
  9. ACETYLSALICYLIC ACID [Concomitant]
  10. LASIX [Concomitant]
  11. CALCIUM CARBONATE [Concomitant]
  12. SPIRIVA [Concomitant]
     Route: 055
  13. FLUOCINONIDE [Concomitant]
     Route: 045

REACTIONS (1)
  - DYSPNOEA [None]
